FAERS Safety Report 5637818-3 (Version None)
Quarter: 2008Q1

REPORT INFORMATION
  Report Type: 
  Country: None (occurrence: None)
  Receive Date: 20080221
  Receipt Date: 20080214
  Transmission Date: 20080703
  Serious: Yes (Other)
  Sender: FDA-Public Use
  Company Number: CHPA2008US02938

PATIENT

DRUGS (2)
  1. BUCKLEY'S MIXTURE (USA) (NCH)(DEXTROMETHORPHAN HYDROBROMIDE) SYRUP [Suspect]
     Indication: COUGH
     Dosage: 2  TSP, ONCE/SINGLE, ORAL
     Route: 048
     Dates: start: 20080213, end: 20080213
  2. METADATE (METHYLPHENIDATE HYDROCHLORIDE) [Concomitant]

REACTIONS (2)
  - HALLUCINATION, VISUAL [None]
  - INCORRECT DOSE ADMINISTERED [None]
